FAERS Safety Report 17950432 (Version 3)
Quarter: 2020Q3

REPORT INFORMATION
  Report Type: Spontaneous
  Country: US (occurrence: US)
  Receive Date: 20200626
  Receipt Date: 20200805
  Transmission Date: 20201103
  Serious: Yes (Death, Other)
  Sender: FDA-Public Use
  Company Number: US-GILEAD-2020-0475638

PATIENT
  Age: 78 Year
  Sex: Male
  Weight: 85.8 kg

DRUGS (9)
  1. INSULIN [Concomitant]
     Active Substance: INSULIN NOS
  2. REMDESIVIR. [Suspect]
     Active Substance: REMDESIVIR
     Indication: COVID-19
     Dosage: 200 MG, UNK
     Route: 042
     Dates: start: 20200607, end: 20200607
  3. FENTANYL. [Concomitant]
     Active Substance: FENTANYL
  4. METOPROLOL. [Concomitant]
     Active Substance: METOPROLOL
  5. DOPAMINE [Concomitant]
     Active Substance: DOPAMINE HYDROCHLORIDE
  6. NOREPINEPHRINE. [Concomitant]
     Active Substance: NOREPINEPHRINE
  7. HEPARIN [Concomitant]
     Active Substance: HEPARIN SODIUM
  8. VECURONIUM [Concomitant]
     Active Substance: VECURONIUM BROMIDE
  9. REMDESIVIR. [Suspect]
     Active Substance: REMDESIVIR
     Dosage: 100 MG, UNK
     Route: 042
     Dates: start: 20200608, end: 20200616

REACTIONS (1)
  - COVID-19 [Fatal]
